FAERS Safety Report 7957184-8 (Version None)
Quarter: 2011Q4

REPORT INFORMATION
  Report Type: 
  Country: None (occurrence: None)
  Receive Date: 20111205
  Receipt Date: 20111202
  Transmission Date: 20120403
  Serious: Yes (Death)
  Sender: FDA-Public Use
  Company Number: GB-ROCHE-GNE321905

PATIENT
  Sex: Female

DRUGS (5)
  1. SIMVASTATIN [Concomitant]
     Indication: BLOOD CHOLESTEROL INCREASED
  2. AMLODIPINE [Concomitant]
     Indication: HYPERTENSION
     Dates: start: 20041105
  3. LUCENTIS [Suspect]
     Indication: AGE-RELATED MACULAR DEGENERATION
     Dosage: UNK UNK, UNKNOWN
     Route: 050
     Dates: start: 20090519
  4. FUROSEMIDE [Concomitant]
     Indication: DYSPNOEA
  5. RAMIPRIL [Concomitant]
     Indication: BLOOD PRESSURE
     Dates: start: 20001212

REACTIONS (2)
  - RESPIRATORY FAILURE [None]
  - PNEUMONIA [None]
